FAERS Safety Report 18275586 (Version 2)
Quarter: 2025Q2

REPORT INFORMATION
  Report Type: Spontaneous
  Country: FR (occurrence: FR)
  Receive Date: 20200917
  Receipt Date: 20250630
  Transmission Date: 20250717
  Serious: Yes (Hospitalization, Other)
  Sender: AUROBINDO
  Company Number: FR-MLMSERVICE-20200908-2405130-1

PATIENT
  Age: 74 Year
  Sex: Male

DRUGS (4)
  1. OLANZAPINE [Suspect]
     Active Substance: OLANZAPINE
     Indication: Product used for unknown indication
     Route: 065
     Dates: start: 2016
  2. CLOMIPRAMINE [Suspect]
     Active Substance: CLOMIPRAMINE
     Indication: Depression
     Route: 065
     Dates: start: 201608, end: 2016
  3. RIVASTIGMINE [Concomitant]
     Active Substance: RIVASTIGMINE
     Indication: Dementia with Lewy bodies
     Dosage: 1.5 MILLIGRAM, TWO TIMES A DAY
     Route: 065
  4. VENLAFAXINE [Concomitant]
     Active Substance: VENLAFAXINE HYDROCHLORIDE
     Indication: Product used for unknown indication
     Dosage: 300 MILLIGRAM, ONCE A DAY
     Route: 065

REACTIONS (10)
  - Confusional state [Recovering/Resolving]
  - Drug hypersensitivity [Recovering/Resolving]
  - Extrapyramidal disorder [Recovering/Resolving]
  - Cognitive disorder [Recovering/Resolving]
  - Orthostatic hypotension [Unknown]
  - Hallucination, visual [Recovered/Resolved]
  - Dysuria [Unknown]
  - Dyspraxia [Recovering/Resolving]
  - Sleep disorder [Unknown]
  - Dysphagia [Recovering/Resolving]

NARRATIVE: CASE EVENT DATE: 20160101
